FAERS Safety Report 23029782 (Version 4)
Quarter: 2025Q4

REPORT INFORMATION
  Report Type: Spontaneous
  Country: JP (occurrence: JP)
  Receive Date: 20231004
  Receipt Date: 20251222
  Transmission Date: 20260118
  Serious: Yes (Other)
  Sender: SANOFI AVENTIS
  Company Number: JP-SA-2023SA298528

PATIENT
  Age: 46 Year
  Sex: Female

DRUGS (2)
  1. DUPIXENT [Suspect]
     Active Substance: DUPILUMAB
     Indication: Dermatitis atopic
     Dosage: UNK UNK, QOW
     Route: 058
  2. DUPIXENT [Suspect]
     Active Substance: DUPILUMAB
     Dosage: UNK, Q5W
     Route: 058

REACTIONS (10)
  - Corneal epitheliopathy [Unknown]
  - Corneal opacity [Recovering/Resolving]
  - Visual acuity reduced [Recovering/Resolving]
  - Conjunctivalisation [Not Recovered/Not Resolved]
  - Conjunctival disorder [Not Recovered/Not Resolved]
  - Symblepharon [Not Recovered/Not Resolved]
  - Punctate keratitis [Not Recovered/Not Resolved]
  - Conjunctivitis [Recovering/Resolving]
  - Conjunctival hyperaemia [Recovering/Resolving]
  - Ciliary hyperaemia [Unknown]
